FAERS Safety Report 22373417 (Version 1)
Quarter: 2023Q2

REPORT INFORMATION
  Report Type: Spontaneous
  Country: GB (occurrence: GB)
  Receive Date: 20230526
  Receipt Date: 20230526
  Transmission Date: 20230721
  Serious: Yes (Disabling, Other)
  Sender: FDA-Public Use
  Company Number: None

PATIENT
  Sex: Female

DRUGS (1)
  1. MONTELUKAST SODIUM [Suspect]
     Active Substance: MONTELUKAST SODIUM
     Indication: Respiratory symptom
     Dosage: 5MG
     Route: 048
     Dates: start: 20211228

REACTIONS (6)
  - Withdrawal syndrome [Unknown]
  - Anxiety [Unknown]
  - Psychotic disorder [Unknown]
  - Hallucination [Unknown]
  - Sleep terror [Unknown]
  - Sleep disorder [Unknown]

NARRATIVE: CASE EVENT DATE: 20230405
